FAERS Safety Report 4888880-7 (Version None)
Quarter: 2006Q1

REPORT INFORMATION
  Report Type: 
  Country: None (occurrence: None)
  Receive Date: 20060123
  Receipt Date: 20060113
  Transmission Date: 20060701
  Serious: Yes (Hospitalization)
  Sender: FDA-Public Use
  Company Number: US-MERCK-0601USA01698

PATIENT
  Sex: Female

DRUGS (6)
  1. VIOXX [Suspect]
     Route: 048
  2. ADVIL [Suspect]
     Indication: BACK PAIN
     Route: 048
     Dates: start: 20040801, end: 20041101
  3. BEXTRA [Suspect]
     Route: 065
  4. CELEBREX [Suspect]
     Route: 065
  5. TYLENOL W/ CODEINE [Suspect]
     Route: 065
  6. ALEVE [Suspect]
     Route: 065
     Dates: start: 20051001

REACTIONS (2)
  - DRUG INEFFECTIVE [None]
  - GASTRITIS [None]
